FAERS Safety Report 24111105 (Version 1)
Quarter: 2024Q3

REPORT INFORMATION
  Report Type: Spontaneous
  Country: SK (occurrence: SK)
  Receive Date: 20240718
  Receipt Date: 20240718
  Transmission Date: 20241016
  Serious: Yes (Other)
  Sender: MYLAN
  Company Number: SK-TEVA-VS-3216350

PATIENT
  Age: 41 Year
  Sex: Male

DRUGS (1)
  1. ATORVASTATIN [Suspect]
     Active Substance: ATORVASTATIN
     Indication: Blood cholesterol increased
     Dosage: 40 MILLIGRAM
     Route: 048
     Dates: start: 20240302, end: 20240322

REACTIONS (14)
  - Nasal inflammation [Not Recovered/Not Resolved]
  - Speech disorder [Recovered/Resolved]
  - Blood pressure increased [Recovered/Resolved]
  - Diplopia [Recovered/Resolved]
  - Vertigo [Not Recovered/Not Resolved]
  - Pain [Recovered/Resolved]
  - Rhinalgia [Not Recovered/Not Resolved]
  - Influenza like illness [Not Recovered/Not Resolved]
  - Asthenia [Recovered/Resolved]
  - Headache [Not Recovered/Not Resolved]
  - Memory impairment [Recovered/Resolved]
  - Tinnitus [Recovered/Resolved]
  - Dizziness [Recovered/Resolved]
  - Loss of personal independence in daily activities [Unknown]
